FAERS Safety Report 11688435 (Version 4)
Quarter: 2017Q3

REPORT INFORMATION
  Report Type: Report from Study
  Country: US (occurrence: US)
  Receive Date: 20151101
  Receipt Date: 20170822
  Transmission Date: 20171127
  Serious: Yes (Other)
  Sender: FDA-Public Use
  Company Number: PHHY2015US123276

PATIENT
  Age: 51 Year
  Sex: Female

DRUGS (1)
  1. GILENYA [Suspect]
     Active Substance: FINGOLIMOD HYDROCHLORIDE
     Indication: MULTIPLE SCLEROSIS
     Dosage: UNK, QD
     Route: 048

REACTIONS (13)
  - Pyrexia [Unknown]
  - Rash [Recovered/Resolved]
  - Sinusitis [Recovered/Resolved]
  - Groin pain [Recovered/Resolved]
  - Leukopenia [Unknown]
  - Muscular weakness [Unknown]
  - Blood pressure increased [Unknown]
  - Basal cell carcinoma [Unknown]
  - Dry eye [Unknown]
  - Eye irritation [Unknown]
  - Hypertension [Unknown]
  - Ocular discomfort [Unknown]
  - Eye pain [Unknown]

NARRATIVE: CASE EVENT DATE: 20141124
